FAERS Safety Report 12169739 (Version 2)
Quarter: 2016Q1

REPORT INFORMATION
  Report Type: Report from Study
  Country: US (occurrence: US)
  Receive Date: 20160310
  Receipt Date: 20160321
  Transmission Date: 20160526
  Serious: Yes (Other)
  Sender: FDA-Public Use
  Company Number: US-ABBVIE-16P-163-1576953-00

PATIENT
  Age: 17 Year
  Sex: Female

DRUGS (7)
  1. VITAMIN C [Concomitant]
     Active Substance: ASCORBIC ACID
     Indication: VITAMIN SUPPLEMENTATION
     Route: 048
  2. VITAMIN D [Concomitant]
     Active Substance: CHOLECALCIFEROL
     Indication: VITAMIN SUPPLEMENTATION
     Route: 048
  3. GLUCOSAMINE [Concomitant]
     Active Substance: GLUCOSAMINE
     Indication: ARTHROPATHY
     Dosage: 7 DAILY
     Route: 065
  4. FISH OIL [Concomitant]
     Active Substance: FISH OIL
     Indication: SUPPLEMENTATION THERAPY
     Dosage: UNKNOWN DOSE EVERY OTHER DAY
     Route: 048
  5. LUPRON DEPOT [Suspect]
     Active Substance: LEUPROLIDE ACETATE
     Indication: ENDOMETRIOSIS
     Route: 050
     Dates: start: 199511, end: 199604
  6. VITAMINS NOS [Concomitant]
     Active Substance: VITAMINS
     Indication: VITAMIN SUPPLEMENTATION
     Route: 048
  7. NUTRILITE CAL-MAG-D [Concomitant]
     Indication: NUTRITIONAL SUPPLEMENTATION
     Dosage: UNKNOWN DOSE EVERY OTHER DAY
     Route: 048

REACTIONS (33)
  - Ovarian cyst [Recovering/Resolving]
  - Vulvovaginal dryness [Recovered/Resolved]
  - Endometriosis [Not Recovered/Not Resolved]
  - Ovarian cyst [Recovered/Resolved]
  - Sleep apnoea syndrome [Not Recovered/Not Resolved]
  - Fall [Recovering/Resolving]
  - Endometriosis [Recovering/Resolving]
  - Endometriosis [Not Recovered/Not Resolved]
  - Ovarian cyst [Recovered/Resolved]
  - Road traffic accident [Recovered/Resolved]
  - Night sweats [Recovered/Resolved]
  - Back pain [Not Recovered/Not Resolved]
  - Arthropathy [Not Recovered/Not Resolved]
  - Scar [Recovered/Resolved]
  - Muscular weakness [Not Recovered/Not Resolved]
  - Abortion spontaneous [Recovered/Resolved]
  - Biopsy muscle [Recovering/Resolving]
  - Foetal death [Unknown]
  - Abdominal pain [Not Recovered/Not Resolved]
  - Migraine [Recovering/Resolving]
  - Nerve block [Recovered/Resolved]
  - Ovarian cyst ruptured [Recovered/Resolved]
  - Laceration [Recovered/Resolved]
  - Uterine polyp [Recovered/Resolved]
  - Hot flush [Recovered/Resolved]
  - Nausea [Recovering/Resolving]
  - Myasthenia gravis [Recovering/Resolving]
  - Gangrene [Recovered/Resolved]
  - Acoustic neuroma [Not Recovered/Not Resolved]
  - Muscular weakness [Recovering/Resolving]
  - Ovarian cyst [Not Recovered/Not Resolved]
  - Exposure during pregnancy [Unknown]
  - Uterine adhesions [Recovered/Resolved]

NARRATIVE: CASE EVENT DATE: 199511
